FAERS Safety Report 12302938 (Version 2)
Quarter: 2016Q2

REPORT INFORMATION
  Report Type: Report from Study
  Country: US (occurrence: US)
  Receive Date: 20160426
  Receipt Date: 20160502
  Transmission Date: 20160815
  Serious: No
  Sender: FDA-Public Use
  Company Number: US-AMGEN-USASL2016049605

PATIENT
  Age: 55 Year
  Sex: Female

DRUGS (2)
  1. ENBREL [Suspect]
     Active Substance: ETANERCEPT
     Dosage: 50 MG, WEEKLY
     Route: 065
  2. ENBREL [Suspect]
     Active Substance: ETANERCEPT
     Indication: RHEUMATOID ARTHRITIS
     Dosage: UNK
     Route: 065

REACTIONS (9)
  - Device failure [Unknown]
  - Dry skin [Unknown]
  - Accidental exposure to product [Unknown]
  - Injection site extravasation [Unknown]
  - Pigmentation disorder [Unknown]
  - Injection site pain [Unknown]
  - Erythema [Unknown]
  - Swelling [Unknown]
  - Injection site haemorrhage [Recovered/Resolved]
